FAERS Safety Report 16251184 (Version 1)
Quarter: 2019Q2

REPORT INFORMATION
  Report Type: Report from Study
  Country: CA (occurrence: CA)
  Receive Date: 20190429
  Receipt Date: 20190429
  Transmission Date: 20190711
  Serious: Yes (Hospitalization, Other)
  Sender: FDA-Public Use
  Company Number: CA-MYLANLABS-2016M1043524

PATIENT
  Age: 76 Year
  Sex: Female

DRUGS (1)
  1. CLOZARIL [Suspect]
     Active Substance: CLOZAPINE
     Indication: PRODUCT USED FOR UNKNOWN INDICATION
     Dosage: UNK
     Route: 048
     Dates: start: 20050816

REACTIONS (9)
  - Pneumonia [Unknown]
  - Diabetes mellitus [Unknown]
  - Obesity [Unknown]
  - Pyrexia [Unknown]
  - Cardiometabolic syndrome [Unknown]
  - Urinary tract infection [Not Recovered/Not Resolved]
  - Leukocytosis [Not Recovered/Not Resolved]
  - Infection [Unknown]
  - Bronchitis [Unknown]

NARRATIVE: CASE EVENT DATE: 2017
